FAERS Safety Report 10301975 (Version 2)
Quarter: 2014Q3

REPORT INFORMATION
  Report Type: Spontaneous
  Country: US (occurrence: US)
  Receive Date: 20140714
  Receipt Date: 20140714
  Transmission Date: 20150326
  Serious: Yes (Other)
  Sender: FDA-Public Use
  Company Number: US-BEH-2014040597

PATIENT
  Age: 33 Year
  Sex: Female

DRUGS (7)
  1. HIZENTRA [Suspect]
     Active Substance: HUMAN IMMUNOGLOBULIN G
     Indication: IMMUNODEFICIENCY COMMON VARIABLE
     Dosage: 2 ONE HALF HOURS LONG FOR INFUSION
     Route: 058
     Dates: start: 20130501
  2. ROBAXIN [Concomitant]
     Active Substance: METHOCARBAMOL
     Indication: PREMEDICATION
  3. MAXALT [Concomitant]
     Active Substance: RIZATRIPTAN BENZOATE
     Indication: PREMEDICATION
  4. PHENERGAN [Concomitant]
     Active Substance: PROMETHAZINE HYDROCHLORIDE
     Indication: PREMEDICATION
  5. EPIPEN [Concomitant]
     Active Substance: EPINEPHRINE
  6. BENADRYL [Concomitant]
     Active Substance: DIPHENHYDRAMINE HYDROCHLORIDE
     Indication: PREMEDICATION
  7. ROBAXIN [Concomitant]
     Active Substance: METHOCARBAMOL
     Indication: PREMEDICATION

REACTIONS (15)
  - Muscle twitching [Recovered/Resolved]
  - Migraine [Unknown]
  - Myositis [Unknown]
  - Muscle enzyme increased [Unknown]
  - Fatigue [Unknown]
  - Dyspnoea [Recovered/Resolved]
  - Nausea [Recovered/Resolved]
  - Muscle spasms [Unknown]
  - Nausea [Unknown]
  - Muscle contractions involuntary [Unknown]
  - Migraine [Recovered/Resolved]
  - Headache [Unknown]
  - Dizziness [Recovered/Resolved]
  - Burning sensation [Unknown]
  - Myalgia [Unknown]

NARRATIVE: CASE EVENT DATE: 20140629
